FAERS Safety Report 10060982 (Version 1)
Quarter: 2014Q2

REPORT INFORMATION
  Report Type: Spontaneous
  Country: CL (occurrence: CL)
  Receive Date: 20140405
  Receipt Date: 20140405
  Transmission Date: 20141212
  Serious: Yes (Disabling)
  Sender: FDA-Public Use
  Company Number: CL-ROCHE-1375013

PATIENT
  Age: 40 Year
  Sex: Female
  Weight: 57 kg

DRUGS (3)
  1. XELODA [Suspect]
     Indication: BREAST CANCER
     Dosage: 14 DAYS PER CYCLE
     Route: 048
     Dates: start: 20140227
  2. EUTIROX [Concomitant]
     Indication: THYROID CANCER
     Route: 048
     Dates: start: 2012
  3. PREGABALIN [Concomitant]
     Indication: CANCER PAIN
     Route: 048

REACTIONS (9)
  - Dental caries [Recovering/Resolving]
  - Somnolence [Recovering/Resolving]
  - Hypersomnia [Recovering/Resolving]
  - Muscular weakness [Recovering/Resolving]
  - Dizziness [Not Recovered/Not Resolved]
  - Pain [Not Recovered/Not Resolved]
  - Burning sensation [Not Recovered/Not Resolved]
  - Increased appetite [Not Recovered/Not Resolved]
  - Haematochezia [Recovered/Resolved]
